FAERS Safety Report 9018166 (Version 1)
Quarter: 2013Q1

REPORT INFORMATION
  Report Type: Spontaneous
  Country: IT (occurrence: IT)
  Receive Date: 20130117
  Receipt Date: 20130117
  Transmission Date: 20140127
  Serious: Yes (Other)
  Sender: FDA-Public Use
  Company Number: PHHY2012IT124456

PATIENT
  Age: 50 Year
  Sex: Female

DRUGS (2)
  1. FEMARA [Suspect]
     Dosage: UNK UKN, UNK
     Dates: start: 2010
  2. COPAXONE [Concomitant]
     Dosage: UNK UKN, UNK
     Dates: start: 200301

REACTIONS (1)
  - Multiple sclerosis relapse [Unknown]
